FAERS Safety Report 15934432 (Version 1)
Quarter: 2019Q1

REPORT INFORMATION
  Report Type: Spontaneous
  Country: GR (occurrence: GR)
  Receive Date: 20190207
  Receipt Date: 20190207
  Transmission Date: 20190417
  Serious: Yes (Hospitalization)
  Sender: FDA-Public Use
  Company Number: GR-BAUSCH-BL-2019-002735

PATIENT
  Age: 57 Year
  Sex: Male

DRUGS (2)
  1. KYNTHEUM [Suspect]
     Active Substance: BRODALUMAB
     Indication: PRODUCT USED FOR UNKNOWN INDICATION
     Route: 065
  2. KYNTHEUM [Suspect]
     Active Substance: BRODALUMAB
     Dosage: 4TH INJECTION
     Route: 065
     Dates: start: 20190118

REACTIONS (2)
  - Arthralgia [Recovered/Resolved]
  - Furuncle [Recovering/Resolving]

NARRATIVE: CASE EVENT DATE: 20190119
